FAERS Safety Report 14682568 (Version 1)
Quarter: 2018Q1

REPORT INFORMATION
  Report Type: Spontaneous
  Country: US (occurrence: US)
  Receive Date: 20180327
  Receipt Date: 20180327
  Transmission Date: 20180509
  Serious: Yes (Hospitalization, Other)
  Sender: FDA-Public Use
  Company Number: US-ABBVIE-18P-163-2298983-00

PATIENT
  Sex: Female

DRUGS (7)
  1. SYNTHROID [Interacting]
     Active Substance: LEVOTHYROXINE SODIUM
     Route: 048
     Dates: start: 2010
  2. SYNTHROID [Interacting]
     Active Substance: LEVOTHYROXINE SODIUM
     Route: 048
     Dates: start: 2002, end: 2010
  3. TAMOXIFEN [Concomitant]
     Active Substance: TAMOXIFEN
     Indication: PRODUCT USED FOR UNKNOWN INDICATION
     Route: 065
  4. FENTANYL. [Concomitant]
     Active Substance: FENTANYL
     Indication: PRODUCT USED FOR UNKNOWN INDICATION
     Route: 065
  5. SYNTHROID [Suspect]
     Active Substance: LEVOTHYROXINE SODIUM
     Indication: HYPOTHYROIDISM
     Route: 048
     Dates: start: 2001, end: 2002
  6. DEXAMETHASONE. [Interacting]
     Active Substance: DEXAMETHASONE
     Indication: BREAST CANCER
     Route: 065
     Dates: start: 2011
  7. AROMASIN [Suspect]
     Active Substance: EXEMESTANE
     Indication: PRODUCT USED FOR UNKNOWN INDICATION
     Route: 065

REACTIONS (7)
  - Myopathy [Recovered/Resolved]
  - Drug interaction [Not Recovered/Not Resolved]
  - Gait inability [Recovered/Resolved]
  - Hypertension [Not Recovered/Not Resolved]
  - Trigger finger [Recovered/Resolved]
  - Blood cholesterol increased [Not Recovered/Not Resolved]
  - Breast cancer [Not Recovered/Not Resolved]

NARRATIVE: CASE EVENT DATE: 2010
